FAERS Safety Report 13853839 (Version 1)
Quarter: 2017Q3

REPORT INFORMATION
  Report Type: Spontaneous
  Country: FR (occurrence: FR)
  Receive Date: 20170809
  Receipt Date: 20170809
  Transmission Date: 20171127
  Serious: Yes (Hospitalization)
  Sender: FDA-Public Use
  Company Number: FR-SA-2017SA143196

PATIENT
  Sex: Female

DRUGS (5)
  1. PAROXETINE HYDROCHLORIDE. [Suspect]
     Active Substance: PAROXETINE HYDROCHLORIDE
     Indication: DEPRESSION
     Dosage: 14 TABLETS OF PAROXETINE 20 MG
     Route: 048
     Dates: start: 20170718, end: 20170718
  2. SOLOSTAR [Suspect]
     Active Substance: DEVICE
     Indication: SUICIDE ATTEMPT
     Route: 065
     Dates: start: 20170718, end: 20170718
  3. PAROXETINE HYDROCHLORIDE. [Suspect]
     Active Substance: PAROXETINE HYDROCHLORIDE
     Indication: SUICIDE ATTEMPT
     Dosage: 14 TABLETS OF PAROXETINE 20 MG
     Route: 048
     Dates: start: 20170718, end: 20170718
  4. LANTUS SOLOSTAR [Suspect]
     Active Substance: INSULIN GLARGINE
     Indication: SUICIDE ATTEMPT
     Dosage: SHE INJECTED 2 PENS OF LANTUS
     Route: 058
     Dates: start: 20170718, end: 20170718
  5. HUMALOG [Suspect]
     Active Substance: INSULIN LISPRO
     Indication: SUICIDE ATTEMPT
     Dosage: INJECTED 7 PENS OF HUMALOG
     Route: 058
     Dates: start: 20170718, end: 20170718

REACTIONS (3)
  - Suicide attempt [Unknown]
  - Hypoglycaemia [Recovered/Resolved]
  - Nystagmus [Recovered/Resolved]

NARRATIVE: CASE EVENT DATE: 20170718
